FAERS Safety Report 6579591-0 (Version None)
Quarter: 2010Q1

REPORT INFORMATION
  Report Type: 
  Country: None (occurrence: None)
  Receive Date: 20100212
  Receipt Date: 20100202
  Transmission Date: 20100710
  Serious: Yes (Other)
  Sender: FDA-Public Use
  Company Number: US-PFIZER INC-2010016199

PATIENT
  Sex: Female

DRUGS (7)
  1. LYRICA [Suspect]
     Indication: FIBROMYALGIA
     Dosage: 75 MG, 3X/DAY
     Dates: end: 20090101
  2. NEURONTIN [Suspect]
     Indication: FIBROMYALGIA
  3. CYMBALTA [Concomitant]
     Indication: FIBROMYALGIA
     Dosage: UNK
  4. MELOXICAM [Concomitant]
     Indication: ARTHRITIS
     Dosage: UNK
  5. PROVIGIL [Concomitant]
     Indication: FATIGUE
     Dosage: UNK
  6. ARMODAFINIL [Concomitant]
     Indication: FATIGUE
     Dosage: UNK
  7. LEVOXYL [Concomitant]
     Indication: THYROID DISORDER
     Dosage: UNK

REACTIONS (5)
  - DRUG INEFFECTIVE FOR UNAPPROVED INDICATION [None]
  - EYE PAIN [None]
  - MIGRAINE [None]
  - VISION BLURRED [None]
  - WEIGHT INCREASED [None]
